FAERS Safety Report 13656220 (Version 2)
Quarter: 2017Q3

REPORT INFORMATION
  Report Type: Spontaneous
  Country: US (occurrence: US)
  Receive Date: 20170615
  Receipt Date: 20170815
  Transmission Date: 20171127
  Serious: Yes (Hospitalization, Other)
  Sender: FDA-Public Use
  Company Number: PHEH2017US017233

PATIENT
  Age: 55 Year
  Sex: Female

DRUGS (16)
  1. XIFAXAN [Concomitant]
     Active Substance: RIFAXIMIN
     Indication: PRODUCT USED FOR UNKNOWN INDICATION
     Dosage: 550 MG, UNK
     Route: 065
  2. ALPRAZOLAM. [Concomitant]
     Active Substance: ALPRAZOLAM
     Indication: PRODUCT USED FOR UNKNOWN INDICATION
     Dosage: 1 MG, UNK
     Route: 065
  3. LACTULOSE. [Concomitant]
     Active Substance: LACTULOSE
     Indication: PRODUCT USED FOR UNKNOWN INDICATION
     Dosage: 15 ML, UNK
     Route: 065
  4. PRAVASTATIN. [Concomitant]
     Active Substance: PRAVASTATIN
     Indication: PRODUCT USED FOR UNKNOWN INDICATION
     Dosage: 20 MG, UNK
     Route: 065
  5. NADOLOL. [Concomitant]
     Active Substance: NADOLOL
     Indication: PRODUCT USED FOR UNKNOWN INDICATION
     Dosage: 40 MG, UNK
     Route: 065
  6. ASA [Concomitant]
     Active Substance: ASPIRIN
     Indication: PRODUCT USED FOR UNKNOWN INDICATION
     Dosage: 81 MG, UNK
     Route: 065
  7. OXYCODONE [Concomitant]
     Active Substance: OXYCODONE
     Indication: PRODUCT USED FOR UNKNOWN INDICATION
     Dosage: 5 MG, UNK
     Route: 065
  8. PHENERGAN [Interacting]
     Active Substance: PROMETHAZINE HYDROCHLORIDE
     Indication: PRODUCT USED FOR UNKNOWN INDICATION
     Route: 065
  9. FLUCONAZOLE. [Interacting]
     Active Substance: FLUCONAZOLE
     Indication: FUNGAL INFECTION
     Route: 065
  10. MAGNESIUM OXIDE. [Concomitant]
     Active Substance: MAGNESIUM OXIDE
     Dosage: 400 MG, BID (IN MORNING AND AT NIGHT)
     Route: 065
  11. ZOFRAN [Suspect]
     Active Substance: ONDANSETRON HYDROCHLORIDE
     Indication: ABDOMINAL DISCOMFORT
     Dosage: 4 MG, PRN
     Route: 065
  12. PROGRAF [Interacting]
     Active Substance: TACROLIMUS\TACROLIMUS ANHYDROUS
     Dosage: DOSE INCREASED
     Route: 048
  13. PROGRAF [Interacting]
     Active Substance: TACROLIMUS\TACROLIMUS ANHYDROUS
     Indication: IMMUNOSUPPRESSION
     Dosage: 0.5 MG, BID
     Route: 048
     Dates: start: 201009
  14. COMPAZINE [Interacting]
     Active Substance: PROCHLORPERAZINE MALEATE
     Indication: PRODUCT USED FOR UNKNOWN INDICATION
     Route: 065
  15. LABETALOL [Concomitant]
     Active Substance: LABETALOL\LABETALOL HYDROCHLORIDE
     Indication: PRODUCT USED FOR UNKNOWN INDICATION
     Route: 065
  16. MAGNESIUM OXIDE. [Concomitant]
     Active Substance: MAGNESIUM OXIDE
     Indication: PRODUCT USED FOR UNKNOWN INDICATION
     Dosage: 400 MG, (HALF IN MORNING NAD HALF AT NIGHT)
     Route: 065

REACTIONS (27)
  - Hypertension [Unknown]
  - Pneumonia aspiration [Unknown]
  - Pneumothorax [Unknown]
  - Blood magnesium decreased [Recovered/Resolved]
  - Blood creatinine increased [Recovered/Resolved]
  - Blood potassium decreased [Recovered/Resolved]
  - Haematocrit decreased [Unknown]
  - Respiratory arrest [Unknown]
  - Electrocardiogram QT prolonged [Recovered/Resolved]
  - Skin disorder [Recovering/Resolving]
  - Immunosuppressant drug level decreased [Unknown]
  - Ulcer [Unknown]
  - Drug interaction [Unknown]
  - Blood sodium decreased [Recovered/Resolved]
  - Tardive dyskinesia [Unknown]
  - Cough [Unknown]
  - Blood sodium decreased [Unknown]
  - Hypersensitivity [Unknown]
  - Fluid overload [Recovered/Resolved]
  - Hepatic failure [Unknown]
  - Myocardial infarction [Recovered/Resolved]
  - Fungal infection [Recovered/Resolved]
  - Renal failure [Unknown]
  - Haemoglobin decreased [Unknown]
  - Decubitus ulcer [Unknown]
  - Dry mouth [Unknown]
  - Abdominal discomfort [Unknown]

NARRATIVE: CASE EVENT DATE: 20131127
